FAERS Safety Report 25071537 (Version 2)
Quarter: 2025Q1

REPORT INFORMATION
  Report Type: Spontaneous
  Country: US (occurrence: US)
  Receive Date: 20250312
  Receipt Date: 20250321
  Transmission Date: 20250408
  Serious: Yes (Other)
  Sender: BAUSCH AND LOMB
  Company Number: US-BAUSCHBL-2025BNL003981

PATIENT
  Age: 56 Year
  Sex: Male

DRUGS (1)
  1. WATER [Suspect]
     Active Substance: WATER
     Indication: Product used for unknown indication
     Dosage: PATIENT USED THE PRODUCT A SECOND TIME PRIOR TO GOING TO BED
     Route: 047
     Dates: start: 20250302, end: 20250302

REACTIONS (6)
  - Exophthalmos [Unknown]
  - Eye pruritus [Unknown]
  - Eyelid margin crusting [Unknown]
  - Eye swelling [Unknown]
  - Eye irritation [Unknown]
  - Ocular hyperaemia [Unknown]

NARRATIVE: CASE EVENT DATE: 20250302
